FAERS Safety Report 17840955 (Version 1)
Quarter: 2020Q2

REPORT INFORMATION
  Report Type: Spontaneous
  Country: US (occurrence: US)
  Receive Date: 20200529
  Receipt Date: 20200529
  Transmission Date: 20200714
  Serious: Yes (Life-Threatening, Hospitalization, Other)
  Sender: FDA-Public Use
  Company Number: US-BAYER-2020-093780

PATIENT
  Age: 25 Year
  Sex: Female

DRUGS (2)
  1. PARACETAMOL [Suspect]
     Active Substance: ACETAMINOPHEN
     Dosage: FORCED TO INGEST A LARGE UNKNOWN AMOUNT OF ACETAMINOPHEN
     Route: 048
  2. METHAMPHETAMINE [METAMFETAMINE HYDROCHLORIDE] [Concomitant]
     Active Substance: METHAMPHETAMINE HYDROCHLORIDE
     Indication: PHYSICAL ASSAULT
     Dosage: BEING FORCED TO INGEST ACETAMINOPHEN AND METHAMPHETAMINE
     Route: 048

REACTIONS (3)
  - Toxicity to various agents [Recovering/Resolving]
  - Analgesic drug level increased [Recovering/Resolving]
  - Overdose [Recovering/Resolving]
